FAERS Safety Report 7721619-6 (Version None)
Quarter: 2011Q3

REPORT INFORMATION
  Report Type: 
  Country: None (occurrence: None)
  Receive Date: 20110831
  Receipt Date: 20110810
  Transmission Date: 20111222
  Serious: Yes (Life-Threatening, Other)
  Sender: FDA-Public Use
  Company Number: PHHO2011FR13746

PATIENT
  Sex: Male
  Weight: 62 kg

DRUGS (5)
  1. METHOTREXATE [Suspect]
     Dosage: 14118 MG, QD
     Route: 042
     Dates: start: 20110801
  2. ZOLEDRONIC [Suspect]
     Indication: BONE SARCOMA
     Dosage: 3.4 MG, UNK
     Route: 042
     Dates: start: 20110725
  3. METHOTREXATE [Suspect]
     Indication: BONE SARCOMA
     Dosage: 14118 MG, QD
     Route: 042
     Dates: start: 20110721
  4. TRAMADOL HCL [Concomitant]
     Indication: PAIN
     Dosage: UNK
  5. ACETAMINOPHEN [Concomitant]
     Indication: PAIN

REACTIONS (3)
  - HEPATITIS [None]
  - DYSENTERY [None]
  - SKIN LESION [None]
